FAERS Safety Report 18307320 (Version 1)
Quarter: 2020Q3

REPORT INFORMATION
  Report Type: Spontaneous
  Country: US (occurrence: US)
  Receive Date: 20200924
  Receipt Date: 20200924
  Transmission Date: 20201103
  Serious: No
  Sender: FDA-Public Use
  Company Number: None

PATIENT
  Age: 64 Year
  Sex: Female

DRUGS (1)
  1. LANSOPRAZOLE 30MG DR CAPSULES [Suspect]
     Active Substance: LANSOPRAZOLE
     Route: 048
     Dates: start: 20200919, end: 20200922

REACTIONS (4)
  - Feeling abnormal [None]
  - Product substitution issue [None]
  - Hypoaesthesia oral [None]
  - Hypoaesthesia [None]

NARRATIVE: CASE EVENT DATE: 20200919
